FAERS Safety Report 4590148-3 (Version None)
Quarter: 2005Q1

REPORT INFORMATION
  Report Type: 
  Country: None (occurrence: None)
  Receive Date: 20050218
  Receipt Date: 20050218
  Transmission Date: 20050727
  Serious: No
  Sender: FDA-Public Use
  Company Number: None

PATIENT
  Sex: Female
  Weight: 108.8633 kg

DRUGS (3)
  1. MESALAMINE [Suspect]
     Indication: COLITIS ULCERATIVE
     Dosage: USE 1 ENEMA AT BEDTIME AS DIRECTED
     Dates: start: 20041214, end: 20050130
  2. ASACOL [Concomitant]
  3. PROTONIX [Concomitant]

REACTIONS (6)
  - ANAL INJURY [None]
  - HAEMORRHAGE [None]
  - MEDICATION ERROR [None]
  - PHARMACEUTICAL PRODUCT COMPLAINT [None]
  - RASH [None]
  - TREATMENT NONCOMPLIANCE [None]
